FAERS Safety Report 5792315-X (Version None)
Quarter: 2008Q2

REPORT INFORMATION
  Report Type: 
  Country: None (occurrence: None)
  Receive Date: 20080623
  Receipt Date: 20080401
  Transmission Date: 20081010
  Serious: No
  Sender: FDA-Public Use
  Company Number: DSM-2008-00171

PATIENT
  Age: 68 Year
  Sex: Male

DRUGS (1)
  1. OLMESARTAN MEDOXOMIL AND HYDROCHLOROTHIZIDE [Suspect]
     Indication: ESSENTIAL HYPERTENSION
     Dosage: 20/12.5MG (1 IN 1 D), ORAL
     Route: 048
     Dates: start: 20080201, end: 20080206

REACTIONS (1)
  - PAIN IN EXTREMITY [None]
